FAERS Safety Report 19559358 (Version 1)
Quarter: 2021Q3

REPORT INFORMATION
  Report Type: Spontaneous
  Country: US (occurrence: US)
  Receive Date: 20210715
  Receipt Date: 20210715
  Transmission Date: 20211014
  Serious: Yes (Hospitalization)
  Sender: FDA-Public Use
  Company Number: None

PATIENT
  Sex: Female

DRUGS (3)
  1. TACROLIMUS. [Suspect]
     Active Substance: TACROLIMUS
     Indication: RENAL TRANSPLANT
     Dosage: ?          OTHER FREQUENCY:EVERY 12 HOURS;?
     Route: 048
     Dates: start: 20200522
  2. ASPIRIN LOW DOSE [Concomitant]
     Active Substance: ASPIRIN
  3. CINACALCET. [Suspect]
     Active Substance: CINACALCET
     Indication: PARATHYROID DISORDER
     Dosage: ?          OTHER FREQUENCY:3 TIMES PER WEEK;?
     Route: 048
     Dates: start: 20190517

REACTIONS (1)
  - Infection [None]
